FAERS Safety Report 22113568 (Version 3)
Quarter: 2023Q2

REPORT INFORMATION
  Report Type: Report from Study
  Country: US (occurrence: US)
  Receive Date: 20230320
  Receipt Date: 20230605
  Transmission Date: 20230722
  Serious: No
  Sender: FDA-Public Use
  Company Number: US-002147023-NVSC2023US063476

PATIENT
  Sex: Male

DRUGS (1)
  1. COSENTYX [Suspect]
     Active Substance: SECUKINUMAB
     Indication: Psoriasis
     Dosage: 150 MG, QW (EVERY WEEK X5 WEEKS THEN EVERY 4 WEEKS)
     Route: 058
     Dates: start: 202302

REACTIONS (2)
  - Psoriasis [Unknown]
  - Drug ineffective [Unknown]
